FAERS Safety Report 7722141-3 (Version None)
Quarter: 2011Q3

REPORT INFORMATION
  Report Type: 
  Country: None (occurrence: None)
  Receive Date: 20110831
  Receipt Date: 20110824
  Transmission Date: 20111222
  Serious: Yes (Other)
  Sender: FDA-Public Use
  Company Number: GB-B.I. PHARMACEUTICALS,INC./RIDGEFIELD-2011-UK-00915UK

PATIENT
  Age: 77 Year
  Sex: Male

DRUGS (6)
  1. DABIGATRAN [Suspect]
     Indication: THROMBOSIS PROPHYLAXIS
     Dosage: 150 MG
     Route: 048
     Dates: start: 20110726, end: 20110804
  2. LACTULOSE [Concomitant]
     Indication: CONSTIPATION
     Route: 048
  3. FRAGMIN [Suspect]
     Indication: THROMBOSIS PROPHYLAXIS
     Dosage: 5000 U
     Route: 058
     Dates: start: 20110718, end: 20110726
  4. ACETAMINOPHEN AND CODEINE PHOSPHATE [Concomitant]
     Indication: PAIN
     Route: 048
  5. PERINDOPRIL [Concomitant]
     Indication: LEFT VENTRICULAR DYSFUNCTION
     Dosage: 4 MG
     Route: 048
  6. LEVETIRACETAM [Concomitant]
     Indication: EPILEPSY
     Dosage: 1000 MG
     Route: 048

REACTIONS (1)
  - DEEP VEIN THROMBOSIS [None]
